FAERS Safety Report 10184767 (Version 3)
Quarter: 2014Q2

REPORT INFORMATION
  Report Type: Spontaneous
  Country: US (occurrence: US)
  Receive Date: 20140521
  Receipt Date: 20140605
  Transmission Date: 20141212
  Serious: Yes (Hospitalization, Other)
  Sender: FDA-Public Use
  Company Number: PHEH2014US010137

PATIENT
  Age: 43 Year
  Sex: Female

DRUGS (9)
  1. GILENYA [Suspect]
     Indication: MULTIPLE SCLEROSIS
     Dosage: 0.5 MG, QD
     Route: 048
     Dates: start: 201112
  2. GILENYA [Suspect]
     Dosage: 0.5 MG, QD
     Route: 048
  3. SERTRALINE [Concomitant]
     Indication: DEPRESSION
     Dosage: 125 MG, DAILY
     Route: 048
  4. METFORMIN [Concomitant]
     Indication: POLYCYSTIC OVARIES
     Dosage: 500 MG, BID
     Route: 048
  5. ARMODAFINIL [Concomitant]
     Indication: FATIGUE
     Dosage: 150 MG, DAILY
     Route: 048
  6. BACLOFEN [Concomitant]
     Indication: MUSCLE SPASMS
     Dosage: 10 MG, BID
     Route: 048
  7. TRAMADOL [Concomitant]
     Indication: PAIN
     Dosage: 50 MG, PRN
     Route: 048
  8. OXYCODONE [Concomitant]
     Indication: PAIN
     Dosage: 5 MG, PRN
     Route: 048
  9. ACETAMINOPHEN [Concomitant]
     Dosage: 325 MG, PRN
     Route: 048

REACTIONS (5)
  - Haemorrhage [Unknown]
  - Macular oedema [Recovered/Resolved]
  - Vision blurred [Unknown]
  - Visual impairment [Recovering/Resolving]
  - Weight decreased [Unknown]
